FAERS Safety Report 6168280-2 (Version None)
Quarter: 2009Q2

REPORT INFORMATION
  Report Type: 
  Country: None (occurrence: None)
  Receive Date: 20090427
  Receipt Date: 20090416
  Transmission Date: 20091009
  Serious: Yes (Life-Threatening, Hospitalization)
  Sender: FDA-Public Use
  Company Number: AU-PFIZER INC-2009199458

PATIENT

DRUGS (6)
  1. SUTENT [Suspect]
     Indication: METASTATIC RENAL CELL CARCINOMA
     Dosage: 50 MG, 1X/DAY
     Route: 048
     Dates: start: 20090213, end: 20090310
  2. DEXAMETHASONE [Concomitant]
     Indication: METASTASES TO CENTRAL NERVOUS SYSTEM
     Dosage: 1 MG, UNK
     Dates: start: 20090302, end: 20090305
  3. DEXAMETHASONE [Concomitant]
     Dosage: 0.5 MG, UNK
     Dates: start: 20090305, end: 20090310
  4. ROXITHROMYCIN [Concomitant]
     Indication: RESPIRATORY TRACT INFECTION
     Dosage: 300 MG, UNK
     Dates: start: 20090226, end: 20090310
  5. AUGMENTIN '125' [Concomitant]
     Indication: RESPIRATORY TRACT INFECTION
     Dosage: UNK
     Dates: start: 20090226, end: 20090310
  6. RABEPRAZOLE [Concomitant]
     Indication: DYSPEPSIA
     Dosage: 40 MG, UNK
     Dates: start: 20090226, end: 20090310

REACTIONS (3)
  - LOWER RESPIRATORY TRACT INFECTION [None]
  - LUNG DISORDER [None]
  - THROMBOCYTOPENIA [None]
